FAERS Safety Report 24562661 (Version 2)
Quarter: 2024Q4

REPORT INFORMATION
  Report Type: Spontaneous
  Country: US (occurrence: US)
  Receive Date: 20241029
  Receipt Date: 20241108
  Transmission Date: 20250115
  Serious: Yes (Other)
  Sender: MERCK
  Company Number: US-009507513-2410USA003827

PATIENT
  Age: 12 Year
  Sex: Male

DRUGS (2)
  1. KEYTRUDA [Suspect]
     Active Substance: PEMBROLIZUMAB
     Indication: Osteosarcoma recurrent
     Dosage: UNK
  2. REGORAFENIB [Concomitant]
     Active Substance: REGORAFENIB
     Indication: Osteosarcoma recurrent
     Dosage: UNK

REACTIONS (1)
  - Langerhans^ cell histiocytosis [Recovered/Resolved]
